FAERS Safety Report 21296605 (Version 1)
Quarter: 2022Q3

REPORT INFORMATION
  Report Type: Spontaneous
  Country: FR (occurrence: FR)
  Receive Date: 20220906
  Receipt Date: 20220906
  Transmission Date: 20221027
  Serious: Yes (Other)
  Sender: FDA-Public Use
  Company Number: FR-AFSSAPS-AN20221909

PATIENT
  Age: 53 Year
  Sex: Female

DRUGS (1)
  1. AMOXICILLIN [Suspect]
     Active Substance: AMOXICILLIN
     Indication: Drug provocation test
     Dosage: 1 GRAM, 1 TOTAL
     Route: 048
     Dates: start: 20220706, end: 20220706

REACTIONS (2)
  - Enterocolitis [Recovered/Resolved]
  - Type I hypersensitivity [Recovered/Resolved]
